FAERS Safety Report 8958714 (Version 1)
Quarter: 2012Q4

REPORT INFORMATION
  Report Type: Report from Study
  Country: BR (occurrence: BR)
  Receive Date: 20121211
  Receipt Date: 20121211
  Transmission Date: 20130627
  Serious: Yes (Hospitalization, Other)
  Sender: FDA-Public Use
  Company Number: BR-US-EMD SERONO, INC.-7180961

PATIENT
  Age: 53 Year
  Sex: Female

DRUGS (4)
  1. REBIF [Suspect]
     Indication: MULTIPLE SCLEROSIS
     Dates: start: 20050407
  2. ALPRAZOLAM [Concomitant]
     Indication: PRODUCT USED FOR UNKNOWN INDICATION
  3. DIPYRONE [Concomitant]
     Indication: PAIN
  4. DORFLEX [Concomitant]
     Indication: PAIN

REACTIONS (7)
  - Multiple sclerosis relapse [Unknown]
  - Cognitive disorder [Unknown]
  - Speech disorder [Unknown]
  - Bedridden [Unknown]
  - Faecal incontinence [Unknown]
  - Pain [Unknown]
  - Inappropriate schedule of drug administration [Unknown]
